FAERS Safety Report 9312242 (Version 1)
Quarter: 2013Q2

REPORT INFORMATION
  Report Type: Report from Study
  Country: GB (occurrence: GB)
  Receive Date: 20130528
  Receipt Date: 20130528
  Transmission Date: 20140414
  Serious: Yes (Disabling, Congenital Anomaly)
  Sender: FDA-Public Use
  Company Number: GB-BAXTER-2012BAX020712

PATIENT
  Age: 35 Year
  Sex: Female

DRUGS (31)
  1. CYCLOPHOSPHAMIDE INJECTION 1G [Suspect]
     Indication: DIFFUSE LARGE B-CELL LYMPHOMA
     Route: 042
     Dates: start: 20120410
  2. CYCLOPHOSPHAMIDE INJECTION 1G [Suspect]
     Route: 042
     Dates: start: 20120522
  3. DOXORUBICIN [Suspect]
     Indication: DIFFUSE LARGE B-CELL LYMPHOMA
     Route: 042
     Dates: start: 20120410
  4. DOXORUBICIN [Suspect]
     Route: 042
     Dates: start: 20120522
  5. PREDNISOLONE [Suspect]
     Indication: DIFFUSE LARGE B-CELL LYMPHOMA
     Route: 048
     Dates: start: 20120410
  6. PREDNISOLONE [Suspect]
     Route: 048
     Dates: start: 20120522
  7. RITUXIMAB [Suspect]
     Indication: DIFFUSE LARGE B-CELL LYMPHOMA
     Route: 042
     Dates: start: 20120410
  8. RITUXIMAB [Suspect]
     Route: 042
     Dates: start: 20120522
  9. VINCRISTINE SULFATE [Suspect]
     Indication: DIFFUSE LARGE B-CELL LYMPHOMA
     Route: 040
     Dates: start: 20120410
  10. VINCRISTINE SULFATE [Suspect]
     Route: 042
     Dates: start: 20120522
  11. ACETAMINOPHEN [Concomitant]
     Indication: PREMEDICATION
     Route: 065
     Dates: start: 20120817, end: 20120817
  12. ACETAMINOPHEN [Concomitant]
     Indication: ABDOMINAL PAIN
     Dates: start: 20120817
  13. BENZYDAMINE HYDROCHLORIDE [Concomitant]
     Indication: MUCOSAL INFLAMMATION
     Route: 065
     Dates: start: 20120320, end: 20120817
  14. BENZYDAMINE HYDROCHLORIDE [Concomitant]
     Route: 065
     Dates: start: 20120601, end: 20120817
  15. CODEINE [Concomitant]
     Indication: ORAL PAIN
     Route: 065
     Dates: start: 20120427
  16. COLACE [Concomitant]
     Indication: CONSTIPATION
     Route: 065
  17. DIPHENHYDRAMINE [Concomitant]
     Indication: PREMEDICATION
     Route: 065
     Dates: start: 20120410
  18. LIDOCAINE [Concomitant]
     Indication: PRODUCT USED FOR UNKNOWN INDICATION
     Route: 065
     Dates: start: 20120608
  19. MORPHINE SULFATE [Concomitant]
     Indication: ABDOMINAL DISCOMFORT
     Route: 065
     Dates: start: 20120320, end: 20120817
  20. MORPHINE SULFATE [Concomitant]
     Route: 065
     Dates: start: 20120601, end: 20120817
  21. NAPROXEN [Concomitant]
     Indication: BACK PAIN
     Route: 065
     Dates: start: 201204
  22. PANTOPRAZOLE [Concomitant]
     Indication: DYSPEPSIA
     Route: 065
  23. POLYETHYLENE GLYCOL 3350 [Concomitant]
     Indication: CONSTIPATION
     Route: 065
     Dates: start: 20120608
  24. PREPARATION H [Concomitant]
     Indication: HAEMORRHOIDS
     Route: 065
     Dates: start: 20120517
  25. RANITIDINE [Concomitant]
     Indication: PREMEDICATION
     Route: 065
     Dates: start: 20120410
  26. SENOKOT [Concomitant]
     Indication: CONSTIPATION
     Route: 065
  27. TRAMADOL HYDROCHLORIDE [Concomitant]
     Indication: ABDOMINAL PAIN
     Route: 065
     Dates: start: 20120817
  28. VALACICLOVIR HYDROCHLORIDE [Concomitant]
     Indication: PROPHYLAXIS
     Route: 065
     Dates: start: 20120307, end: 20120630
  29. VALACICLOVIR HYDROCHLORIDE [Concomitant]
     Route: 065
     Dates: start: 20120604, end: 201208
  30. YAZ [Concomitant]
     Indication: CONTRACEPTION
     Route: 065
  31. RESTORALAX [Concomitant]
     Indication: CONSTIPATION
     Route: 065
     Dates: start: 20120608

REACTIONS (2)
  - Condition aggravated [Recovering/Resolving]
  - Stomatitis [Recovering/Resolving]
